FAERS Safety Report 5113324-X (Version None)
Quarter: 2006Q3

REPORT INFORMATION
  Report Type: 
  Country: None (occurrence: None)
  Receive Date: 20060920
  Receipt Date: 20060901
  Transmission Date: 20061208
  Serious: Yes (Hospitalization)
  Sender: FDA-Public Use
  Company Number: US200609001891

PATIENT
  Sex: 0
  Weight: 54.4 kg

DRUGS (1)
  1. ZYPREXA [Suspect]
     Indication: SLEEP DISORDER
     Dosage: 2.5 MG
     Dates: start: 20021220, end: 20030101

REACTIONS (8)
  - BLOOD CHOLESTEROL ABNORMAL [None]
  - DIABETES MELLITUS [None]
  - GASTROENTERITIS [None]
  - HYPERGLYCAEMIA [None]
  - HYPERTENSION [None]
  - PNEUMONIA [None]
  - VISION BLURRED [None]
  - WEIGHT DECREASED [None]
